FAERS Safety Report 8853016 (Version 1)
Quarter: 2012Q4

REPORT INFORMATION
  Report Type: 
  Country: TH (occurrence: TH)
  Receive Date: 20121022
  Receipt Date: 20121022
  Transmission Date: 20130627
  Serious: Yes (Life-Threatening)
  Sender: FDA-Public Use
  Company Number: TH-ASTRAZENECA-2012SE79975

PATIENT
  Age: 42 Year
  Sex: Female

DRUGS (2)
  1. MEROPENEM [Suspect]
     Route: 041
     Dates: start: 20101023, end: 20101031
  2. AMIKACIN [Suspect]
     Route: 041
     Dates: start: 20101023, end: 20101031

REACTIONS (1)
  - Rash erythematous [Unknown]
